FAERS Safety Report 18564192 (Version 2)
Quarter: 2020Q4

REPORT INFORMATION
  Report Type: Report from Study
  Country: US (occurrence: US)
  Receive Date: 20201201
  Receipt Date: 20201218
  Transmission Date: 20210114
  Serious: No
  Sender: FDA-Public Use
  Company Number: US-SA-2020SA336927

PATIENT

DRUGS (2)
  1. DUPILUMAB [Suspect]
     Active Substance: DUPILUMAB
     Dosage: 300 MG, QOW
     Route: 058
     Dates: start: 2020
  2. DUPILUMAB [Suspect]
     Active Substance: DUPILUMAB
     Indication: DERMATITIS ATOPIC
     Dosage: 600 MG, 1X
     Route: 058
     Dates: start: 20201022, end: 20201022

REACTIONS (7)
  - Alopecia [Not Recovered/Not Resolved]
  - Rash [Unknown]
  - Conjunctivitis [Recovered/Resolved]
  - Eye swelling [Recovered/Resolved]
  - Staphylococcal infection [Not Recovered/Not Resolved]
  - Dysuria [Not Recovered/Not Resolved]
  - Eyelid margin crusting [Recovered/Resolved]

NARRATIVE: CASE EVENT DATE: 2020
